FAERS Safety Report 23837983 (Version 2)
Quarter: 2024Q2

REPORT INFORMATION
  Report Type: Spontaneous
  Country: DE (occurrence: DE)
  Receive Date: 20240509
  Receipt Date: 20240629
  Transmission Date: 20240716
  Serious: Yes (Other)
  Sender: FDA-Public Use
  Company Number: DE-AMGEN-DEUSP2024087633

PATIENT

DRUGS (1)
  1. BEVACIZUMAB [Suspect]
     Active Substance: BEVACIZUMAB
     Indication: Glioma
     Dosage: UNK
     Route: 065

REACTIONS (7)
  - Hemiparesis [Unknown]
  - Partial seizures [Unknown]
  - Hemianopia [Unknown]
  - Cerebrospinal fistula [Unknown]
  - Aphasia [Unknown]
  - Cerebrospinal fluid circulation disorder [Unknown]
  - Impaired healing [Unknown]
